FAERS Safety Report 20743990 (Version 1)
Quarter: 2022Q2

REPORT INFORMATION
  Report Type: Spontaneous
  Country: US (occurrence: US)
  Receive Date: 20220425
  Receipt Date: 20220425
  Transmission Date: 20220721
  Serious: Yes (Other)
  Sender: FDA-Public Use
  Company Number: US-SA-SAC20220422000507

PATIENT
  Age: 10 Year
  Sex: Male

DRUGS (7)
  1. ALPROLIX [Suspect]
     Active Substance: EFTRENONACOG ALFA
     Indication: Factor IX deficiency
     Dosage: 2000 UNIT: INFUSE 3334 IU (1 OF 1172 AND 2162 IU) INTRAVENOUSLY AS NEEDED FOR ON DEMAND
     Route: 042
     Dates: start: 20180412
  2. ALPROLIX [Suspect]
     Active Substance: EFTRENONACOG ALFA
     Indication: Factor IX deficiency
     Dosage: 2000 UNIT: INFUSE 3334 IU (1 OF 1172 AND 2162 IU) INTRAVENOUSLY AS NEEDED FOR ON DEMAND
     Route: 042
     Dates: start: 20180412
  3. ALPROLIX [Suspect]
     Active Substance: EFTRENONACOG ALFA
     Dosage: 250 UNIT: INFUSE 3484 UNITS (3 VIALS OF 1072 IU AND 1 VIAL OF 269 IU) INTRAVENOUSLY ONCE A WEEK
     Route: 042
  4. ALPROLIX [Suspect]
     Active Substance: EFTRENONACOG ALFA
     Dosage: 250 UNIT: INFUSE 3484 UNITS (3 VIALS OF 1072 IU AND 1 VIAL OF 269 IU) INTRAVENOUSLY ONCE A WEEK
     Route: 042
  5. HEPARIN LOCK FLUSH [Concomitant]
     Active Substance: HEPARIN SODIUM
     Dosage: UNK
  6. HEPARIN SODIUM [Concomitant]
     Active Substance: HEPARIN SODIUM
  7. SODIUM CHLORIDE [Concomitant]
     Active Substance: SODIUM CHLORIDE

REACTIONS (2)
  - Haemorrhage [Recovered/Resolved]
  - Fall [Recovered/Resolved]

NARRATIVE: CASE EVENT DATE: 20220401
